FAERS Safety Report 7605729-X (Version None)
Quarter: 2011Q3

REPORT INFORMATION
  Report Type: 
  Country: None (occurrence: None)
  Receive Date: 20110705
  Receipt Date: 20110615
  Transmission Date: 20111222
  Serious: Yes (Hospitalization, Other)
  Sender: FDA-Public Use
  Company Number: 2011P1005825

PATIENT
  Age: 91 Year
  Sex: Female
  Weight: 79.3795 kg

DRUGS (10)
  1. DIOVAN [Concomitant]
  2. LEVEMIR (INSULIN DETEMIR, RDNA ORIGIN) [Concomitant]
  3. LASIX [Concomitant]
  4. ZOFRAN [Concomitant]
  5. METHYLPREDNISOLONE 4MG TAB [Suspect]
     Indication: POLYMYALGIA RHEUMATICA
     Dosage: 6 MG;BID;PO
     Route: 048
     Dates: start: 20080415
  6. PLAVIX [Concomitant]
  7. SYNTHROID [Concomitant]
  8. COREG [Concomitant]
  9. HUMULIN R (HUMAN INSULIN, RDNA ORIGIN) [Concomitant]
  10. XANAX [Concomitant]

REACTIONS (6)
  - ABDOMINAL DISTENSION [None]
  - HYPOTHYROIDISM [None]
  - GASTROENTERITIS [None]
  - COLITIS [None]
  - CELLULITIS [None]
  - DYSPNOEA [None]
